FAERS Safety Report 10520525 (Version 1)
Quarter: 2014Q4

REPORT INFORMATION
  Report Type: Spontaneous
  Country: US (occurrence: US)
  Receive Date: 20141015
  Receipt Date: 20141015
  Transmission Date: 20150528
  Serious: Yes (Hospitalization)
  Sender: FDA-Public Use
  Company Number: US-B.I. PHARMACEUTICALS,INC./RIDGEFIELD-2014-BI-48359BP

PATIENT
  Age: 74 Year
  Sex: Female

DRUGS (5)
  1. KLONIPIN [Concomitant]
     Active Substance: CLONAZEPAM
     Indication: AGORAPHOBIA
     Dosage: 2 MG
     Route: 048
     Dates: start: 1968
  2. ATROVENT [Suspect]
     Active Substance: IPRATROPIUM BROMIDE
     Indication: EMPHYSEMA
     Dosage: 136 MCG
     Route: 055
     Dates: start: 2004
  3. BABY ASPIRIN [Concomitant]
     Active Substance: ASPIRIN
     Indication: PRODUCT USED FOR UNKNOWN INDICATION
     Dosage: 81 MG
     Route: 048
  4. PERCOCET [Concomitant]
     Active Substance: ACETAMINOPHEN\OXYCODONE HYDROCHLORIDE
     Indication: HERPES ZOSTER
  5. PERCOCET [Concomitant]
     Active Substance: ACETAMINOPHEN\OXYCODONE HYDROCHLORIDE
     Indication: PAIN
     Dosage: 10 MG
     Route: 048
     Dates: start: 2006

REACTIONS (5)
  - Upper limb fracture [Recovered/Resolved]
  - Fall [Recovered/Resolved]
  - Renal mass [Not Recovered/Not Resolved]
  - Spinal fracture [Not Recovered/Not Resolved]
  - Urinary tract infection [Not Recovered/Not Resolved]

NARRATIVE: CASE EVENT DATE: 20041224
